FAERS Safety Report 24042917 (Version 2)
Quarter: 2024Q3

REPORT INFORMATION
  Report Type: Spontaneous
  Country: US (occurrence: US)
  Receive Date: 20240702
  Receipt Date: 20240718
  Transmission Date: 20241017
  Serious: Yes (Other)
  Sender: ELI LILLY AND CO
  Company Number: US-ELI_LILLY_AND_COMPANY-US202406014806

PATIENT
  Age: 69 Year
  Sex: Female

DRUGS (3)
  1. TALTZ [Suspect]
     Active Substance: IXEKIZUMAB
     Indication: Ankylosing spondylitis
     Dosage: 160 MG, OTHER(LOADING DOSE)
     Route: 065
     Dates: start: 20240408
  2. TALTZ [Suspect]
     Active Substance: IXEKIZUMAB
     Indication: Scoliosis
     Dosage: 80 MG, OTHER(EVERY 4 WEEKS)
     Route: 065
     Dates: start: 20240506
  3. TALTZ [Suspect]
     Active Substance: IXEKIZUMAB
     Dosage: 80 MG, OTHER(EVERY 4 WEEKS)
     Route: 065
     Dates: start: 20240603

REACTIONS (3)
  - Scoliosis [Not Recovered/Not Resolved]
  - Lung disorder [Not Recovered/Not Resolved]
  - Diaphragmatic disorder [Not Recovered/Not Resolved]
